FAERS Safety Report 22169286 (Version 2)
Quarter: 2023Q2

REPORT INFORMATION
  Report Type: Report from Study
  Country: JP (occurrence: JP)
  Receive Date: 20230404
  Receipt Date: 20230523
  Transmission Date: 20230721
  Serious: Yes (Other)
  Sender: FDA-Public Use
  Company Number: JP-JNJFOC-20230378791

PATIENT
  Age: 50 Year
  Sex: Female

DRUGS (14)
  1. BOSENTAN [Suspect]
     Active Substance: BOSENTAN
     Indication: Skin ulcer
     Dosage: IN THE MORNING
     Route: 048
     Dates: start: 20171005, end: 20171018
  2. BOSENTAN [Suspect]
     Active Substance: BOSENTAN
     Dosage: IN THE MORNING
     Route: 048
     Dates: start: 20221031, end: 20221109
  3. BOSENTAN [Suspect]
     Active Substance: BOSENTAN
     Dosage: IN THE MORNING
     Route: 048
     Dates: start: 20221110, end: 20221116
  4. BOSENTAN [Suspect]
     Active Substance: BOSENTAN
     Dosage: IN THE MORNING
     Route: 048
     Dates: start: 20221129, end: 20221129
  5. AMLODIPINE BESYLATE\AZILSARTAN [Suspect]
     Active Substance: AMLODIPINE BESYLATE\AZILSARTAN
     Indication: Hypertension
     Dosage: AZILSARTAN 20MG+AMLODIPINE BESILATE COMBINED DRUG 5MG
     Route: 048
     Dates: start: 20160407, end: 20171005
  6. CILOSTAZOL [Concomitant]
     Active Substance: CILOSTAZOL
     Indication: Peripheral circulatory failure
     Route: 048
     Dates: start: 20140415
  7. LOXOPROFEN SODIUM [Concomitant]
     Active Substance: LOXOPROFEN SODIUM
     Indication: Pain in extremity
     Route: 048
  8. LANSOPRAZOLE [Concomitant]
     Active Substance: LANSOPRAZOLE
     Indication: Gastrooesophageal reflux disease
     Route: 048
     Dates: start: 20090319
  9. REBAMIPIDE [Concomitant]
     Active Substance: REBAMIPIDE
     Indication: Prophylaxis against gastrointestinal ulcer
     Route: 048
     Dates: start: 20081030
  10. CRESTOR [Concomitant]
     Active Substance: ROSUVASTATIN CALCIUM
     Indication: Hyperlipidaemia
     Route: 048
     Dates: start: 20100218
  11. TOCOPHERYL NICOTINATE, D-.ALPHA. [Concomitant]
     Active Substance: TOCOPHERYL NICOTINATE, D-.ALPHA.
     Indication: Skin ulcer
     Route: 048
     Dates: start: 20170720
  12. ELDECALCITOL [Concomitant]
     Active Substance: ELDECALCITOL
     Indication: Osteoporosis prophylaxis
     Route: 048
     Dates: start: 20131226
  13. PREDNISOLONE [Concomitant]
     Active Substance: PREDNISOLONE
     Indication: Skin ulcer
     Route: 048
     Dates: start: 200804
  14. BERAPROST SODIUM [Concomitant]
     Active Substance: BERAPROST SODIUM
     Indication: Skin ulcer
     Route: 048
     Dates: start: 20141009

REACTIONS (5)
  - Liver disorder [Recovered/Resolved]
  - Abdominal pain upper [Recovered/Resolved]
  - Dyspnoea [Recovered/Resolved]
  - Cold sweat [Recovered/Resolved]
  - Blood pressure decreased [Recovered/Resolved]

NARRATIVE: CASE EVENT DATE: 20171005
